FAERS Safety Report 23339274 (Version 1)
Quarter: 2023Q4

REPORT INFORMATION
  Report Type: Report from Study
  Country: US (occurrence: None)
  Receive Date: 20231226
  Receipt Date: 20231226
  Transmission Date: 20240109
  Serious: Yes (Other)
  Sender: FDA-Public Use
  Company Number: 2023A286978

PATIENT
  Age: 62 Year
  Sex: Male

DRUGS (11)
  1. TEZSPIRE [Suspect]
     Active Substance: TEZEPELUMAB-EKKO
  2. BUDESONIDE [Suspect]
     Active Substance: BUDESONIDE
     Dosage: 0.5 MG ORALLY 2 TIMES PER DAY
     Route: 055
     Dates: start: 20211221
  3. TRELEGY ELLIPTA [Concomitant]
     Active Substance: FLUTICASONE FUROATE\UMECLIDINIUM BROMIDE\VILANTEROL TRIFENATATE
     Dates: start: 20220426
  4. PREDNISONE [Concomitant]
     Active Substance: PREDNISONE
     Dates: start: 20220426, end: 20220901
  5. PREDNISONE [Concomitant]
     Active Substance: PREDNISONE
     Dates: start: 20220428
  6. PREDNISONE [Concomitant]
     Active Substance: PREDNISONE
     Dates: start: 20220504, end: 20220901
  7. BENZONATATE [Concomitant]
     Active Substance: BENZONATATE
     Indication: Asthma
     Dosage: TAKE 2 CAPSULE THERRE TIMES PER DAY
     Route: 048
     Dates: start: 20220504, end: 20220901
  8. THEOPHYLLINE ANHYDROUS [Concomitant]
     Active Substance: THEOPHYLLINE ANHYDROUS
     Indication: Asthma
     Dates: start: 20220510
  9. DOXYCYCLINE HYCLATE [Concomitant]
     Active Substance: DOXYCYCLINE HYCLATE
     Indication: Asthma
     Dates: start: 20220510
  10. FLUTICASONE [Concomitant]
     Active Substance: FLUTICASONE
     Indication: Asthma
     Dates: start: 20220510
  11. ALBUTEROL\IPRATROPIUM [Concomitant]
     Active Substance: ALBUTEROL\IPRATROPIUM
     Indication: Asthma
     Dates: start: 20220510

REACTIONS (25)
  - Fracture [Unknown]
  - Hand fracture [Unknown]
  - Cellulitis [Unknown]
  - Decreased appetite [Unknown]
  - Chills [Unknown]
  - Respiration abnormal [Unknown]
  - Fatigue [Unknown]
  - Pyrexia [Unknown]
  - Dyspnoea paroxysmal nocturnal [Unknown]
  - Musculoskeletal chest pain [Unknown]
  - Sleep disorder [Unknown]
  - Hyperhidrosis [Unknown]
  - Joint swelling [Unknown]
  - Weight decreased [Unknown]
  - Somnolence [Unknown]
  - Dyspnoea [Unknown]
  - Snoring [Unknown]
  - Arthralgia [Unknown]
  - Effusion [Unknown]
  - Oedema [Unknown]
  - Right ventricular failure [Unknown]
  - Oedema [Unknown]
  - Asthma [Unknown]
  - Urinary retention [Unknown]
  - Nose deformity [Unknown]
